FAERS Safety Report 8244729-6 (Version None)
Quarter: 2012Q1

REPORT INFORMATION
  Report Type: 
  Country: None (occurrence: None)
  Receive Date: 20120329
  Receipt Date: 20110331
  Transmission Date: 20120608
  Serious: No
  Sender: FDA-Public Use
  Company Number: US-MYLANLABS-2011S1004031

PATIENT
  Age: 57 Year
  Sex: Male
  Weight: 107.96 kg

DRUGS (2)
  1. FENTANYL-100 [Suspect]
     Indication: FIBROMYALGIA
     Dosage: CHANGED Q72H.
     Route: 062
     Dates: start: 20110201
  2. FENTANYL-100 [Suspect]
     Indication: ARTHRALGIA
     Dosage: CHANGED Q72H.
     Route: 062
     Dates: start: 20110201

REACTIONS (5)
  - DRUG EFFECT DECREASED [None]
  - COUGH [None]
  - WHEEZING [None]
  - APPLICATION SITE URTICARIA [None]
  - OROPHARYNGEAL PAIN [None]
